FAERS Safety Report 9903191 (Version 2)
Quarter: 2014Q2

REPORT INFORMATION
  Report Type: Report from Study
  Country: US (occurrence: US)
  Receive Date: 20140217
  Receipt Date: 20140602
  Transmission Date: 20141212
  Serious: Yes (Hospitalization, Other)
  Sender: FDA-Public Use
  Company Number: PHHY2014US017157

PATIENT
  Age: 45 Year
  Sex: Female

DRUGS (5)
  1. OXALIPLATIN [Suspect]
     Indication: COLORECTAL CANCER METASTATIC
     Route: 042
     Dates: start: 20130716
  2. 5-FLUOROURACIL [Suspect]
     Indication: COLORECTAL CANCER METASTATIC
     Dosage: 2400 MG/M2, QW2
     Route: 041
     Dates: start: 20130716
  3. 5-FLUOROURACIL [Suspect]
     Dosage: 400 MG/M2, UNK
     Route: 040
     Dates: start: 20130716
  4. CALCIUM FOLINATE [Suspect]
     Indication: COLORECTAL CANCER METASTATIC
     Dosage: 400 MG/M2, QW2
     Route: 042
     Dates: start: 20130716
  5. AVASTIN [Suspect]
     Indication: COLORECTAL CANCER METASTATIC
     Dosage: 5 MG/KG, UNK
     Route: 042
     Dates: start: 20130716

REACTIONS (3)
  - Postoperative respiratory failure [Recovered/Resolved]
  - Wound secretion [Recovered/Resolved]
  - Acute respiratory distress syndrome [Unknown]
